FAERS Safety Report 6656385 (Version 5)
Quarter: 2012Q4

REPORT INFORMATION
  Report Type: 
  Country: US (occurrence: US)
  Receive Date: 20080520
  Receipt Date: 20121022
  Transmission Date: 20130627
  Serious: Yes (Hospitalization)
  Sender: FDA-Public Use
  Company Number: 2008BI012009

PATIENT
  Age: 59 Year
  Sex: Female
  Weight: 55 kg

DRUGS (16)
  1. AVONEX [Suspect]
     Indication: MULTIPLE SCLEROSIS
     Route: 030
     Dates: start: 20060502, end: 201207
  2. AVONEX [Suspect]
     Indication: MULTIPLE SCLEROSIS
     Route: 030
     Dates: start: 20120801
  3. AVONEX [Suspect]
     Indication: MULTIPLE SCLEROSIS
     Route: 030
     Dates: start: 20120801
  4. BACLOFEN [Concomitant]
     Indication: MUSCLE SPASMS
  5. LEVAQUIN [Concomitant]
     Indication: HIP ARTHROPLASTY
  6. MESTINON [Concomitant]
     Indication: MYASTHENIA GRAVIS
  7. NEURONTIN [Concomitant]
     Indication: EYE PAIN
  8. VYTORIN [Concomitant]
     Indication: BLOOD CHOLESTEROL INCREASED
  9. CALCIUM WITH VITAMIN D [Concomitant]
     Indication: BONE DISORDER
  10. SYNTHROID [Concomitant]
     Indication: HYPOTHYROIDISM
  11. RYNATAN [Concomitant]
     Indication: MULTIPLE ALLERGIES
  12. PROVIGIL [Concomitant]
     Indication: FATIGUE
  13. ZANAFLEX [Concomitant]
     Indication: MUSCLE SPASMS
  14. VALIUM [Concomitant]
     Indication: MUSCLE SPASMS
  15. VALIUM [Concomitant]
     Indication: DYSKINESIA
  16. VALIUM [Concomitant]
     Indication: INFLUENZA LIKE ILLNESS

REACTIONS (5)
  - Cartilage injury [Recovered/Resolved]
  - Hip dysplasia [Unknown]
  - Groin pain [Not Recovered/Not Resolved]
  - Influenza like illness [Recovered/Resolved]
  - Joint stiffness [Not Recovered/Not Resolved]
